FAERS Safety Report 6245965-0 (Version None)
Quarter: 2009Q2

REPORT INFORMATION
  Report Type: 
  Country: None (occurrence: None)
  Receive Date: 20090626
  Receipt Date: 20080904
  Transmission Date: 20091009
  Serious: No
  Sender: FDA-Public Use
  Company Number: A0746111A

PATIENT
  Age: 36 Year
  Sex: Female

DRUGS (3)
  1. IMITREX [Suspect]
     Indication: DRUG USE FOR UNKNOWN INDICATION
     Dosage: 50MG AS REQUIRED
     Route: 048
  2. TOPAMAX [Concomitant]
  3. LYRICA [Concomitant]

REACTIONS (1)
  - HYPERSENSITIVITY [None]
